FAERS Safety Report 4659751-6 (Version None)
Quarter: 2005Q2

REPORT INFORMATION
  Report Type: 
  Country: None (occurrence: None)
  Receive Date: 20050510
  Receipt Date: 20050428
  Transmission Date: 20051028
  Serious: Yes (Hospitalization)
  Sender: FDA-Public Use
  Company Number: 05P-056-0297735-00

PATIENT
  Age: 41 Year
  Sex: Female

DRUGS (23)
  1. KALETRA [Suspect]
     Indication: HIV INFECTION
     Dosage: 3 DOSAGE FORMS, PER ORAL
     Route: 048
     Dates: end: 20050314
  2. PYRIMETHAMINE [Suspect]
     Indication: CEREBRAL TOXOPLASMOSIS
     Dosage: PER ORAL
     Route: 048
     Dates: end: 20050314
  3. CLINDAMYCIN [Suspect]
     Indication: CEREBRAL TOXOPLASMOSIS
     Dates: end: 20050314
  4. LAMIVUDINE + ZIDOVUDINE [Suspect]
     Indication: HIV INFECTION
     Dosage: 1 DOSAGE FORMS, PER ORAL
     Route: 048
     Dates: end: 20050314
  5. CALCIUM FOLINATE [Concomitant]
  6. PENTAMIDINE DILSETHONIATE [Concomitant]
  7. CEFTRIAXONE [Concomitant]
  8. AZITHROMYCIN [Concomitant]
  9. OFLOXACIN [Concomitant]
  10. NSAID [Concomitant]
  11. CALCIUM FOLINATE [Concomitant]
  12. CLARITHROMYCIN [Concomitant]
  13. MINOCYCLINE HYDROCHLORIDE [Concomitant]
  14. BEARBERRY EXTRACT [Concomitant]
  15. HEATHER [Concomitant]
  16. NETTLE [Concomitant]
  17. BIRCH [Concomitant]
  18. GINGER [Concomitant]
  19. COLA [Concomitant]
  20. CINNAMON [Concomitant]
  21. GINSENG [Concomitant]
  22. CLARITHROMYCIN [Concomitant]
  23. MINOCYCLINE HYDROCHLORIDE [Concomitant]

REACTIONS (2)
  - HAEMATURIA [None]
  - PANCYTOPENIA [None]
